FAERS Safety Report 11182883 (Version 3)
Quarter: 2015Q4

REPORT INFORMATION
  Report Type: Spontaneous
  Country: US (occurrence: US)
  Receive Date: 20150611
  Receipt Date: 20151021
  Transmission Date: 20160304
  Serious: Yes (Hospitalization)
  Sender: FDA-Public Use
  Company Number: US-INCYTE CORPORATION-2015IN002642

PATIENT
  Age: 57 Year
  Sex: Female

DRUGS (17)
  1. LORAZEPAM. [Concomitant]
     Active Substance: LORAZEPAM
  2. LEXAPRO [Concomitant]
     Active Substance: ESCITALOPRAM OXALATE
  3. ATIVAN [Concomitant]
     Active Substance: LORAZEPAM
  4. GABAPENTIN. [Concomitant]
     Active Substance: GABAPENTIN
  5. ZOFRAN [Concomitant]
     Active Substance: ONDANSETRON HYDROCHLORIDE
  6. LEVOTHYROXIN [Concomitant]
     Active Substance: LEVOTHYROXINE
  7. JAKAFI [Suspect]
     Active Substance: RUXOLITINIB
     Dosage: NOT SPECIFIED
     Route: 048
     Dates: start: 201504
  8. JAKAFI [Suspect]
     Active Substance: RUXOLITINIB
     Dosage: 20 MG, BID
     Route: 048
     Dates: start: 20150515
  9. MORPHINE SULPHATE [Concomitant]
     Active Substance: MORPHINE SULFATE
  10. COLACE [Concomitant]
     Active Substance: DOCUSATE SODIUM
  11. JAKAFI [Suspect]
     Active Substance: RUXOLITINIB
     Indication: MYELOFIBROSIS
     Dosage: NOT SPECIFIED
     Route: 048
     Dates: start: 201204
  12. HYDROXYZINE HCL [Concomitant]
     Active Substance: HYDROXYZINE HYDROCHLORIDE
  13. COMPAZINE [Concomitant]
     Active Substance: PROCHLORPERAZINE MALEATE
  14. FONDAPARINUX [Concomitant]
     Active Substance: FONDAPARINUX
     Dosage: 7.5 MG, QD
  15. ARIXTRA [Concomitant]
     Active Substance: FONDAPARINUX SODIUM
  16. ACYCLOVIR                          /00587301/ [Concomitant]
     Active Substance: ACYCLOVIR
  17. ALLOPURINOL. [Concomitant]
     Active Substance: ALLOPURINOL

REACTIONS (16)
  - Thrombosis [Not Recovered/Not Resolved]
  - Syncope [Not Recovered/Not Resolved]
  - Blood count abnormal [Unknown]
  - Pyrexia [Unknown]
  - Peripheral swelling [Not Recovered/Not Resolved]
  - Drug dose omission [Unknown]
  - Neutropenia [Unknown]
  - Myelofibrosis [Unknown]
  - Cellulitis [Unknown]
  - Blood count abnormal [Unknown]
  - Infection [Unknown]
  - White blood cell count increased [Unknown]
  - Splenectomy [Unknown]
  - Platelet count increased [Unknown]
  - Haemorrhage [Unknown]
  - Dizziness [Not Recovered/Not Resolved]

NARRATIVE: CASE EVENT DATE: 201412
